FAERS Safety Report 9244819 (Version 2)
Quarter: 2013Q2

REPORT INFORMATION
  Report Type: Spontaneous
  Country: NO (occurrence: NO)
  Receive Date: 20130422
  Receipt Date: 20130426
  Transmission Date: 20140414
  Serious: Yes (Other)
  Sender: FDA-Public Use
  Company Number: NO-PFIZER INC-2013121877

PATIENT
  Age: 6 Decade
  Sex: Male

DRUGS (2)
  1. LYRICA [Suspect]
     Indication: MUSCULOSKELETAL PAIN
     Dosage: 2X75 MG AT MORNING AND 2X75 MG AT EVENING
     Dates: start: 2011, end: 201303
  2. KETORAX [Concomitant]
     Indication: PAIN
     Dosage: UNK

REACTIONS (11)
  - Activities of daily living impaired [Unknown]
  - Impaired driving ability [Unknown]
  - Hypoglycaemia [Unknown]
  - Hyperglycaemia [Unknown]
  - Feeling drunk [Unknown]
  - Fall [Unknown]
  - Fear [Unknown]
  - Weight increased [Unknown]
  - Vision blurred [Unknown]
  - Visual acuity reduced [Unknown]
  - Dizziness [Unknown]
